FAERS Safety Report 20612846 (Version 3)
Quarter: 2022Q4

REPORT INFORMATION
  Report Type: Spontaneous
  Country: US (occurrence: US)
  Receive Date: 20220318
  Receipt Date: 20221227
  Transmission Date: 20230113
  Serious: No
  Sender: FDA-Public Use
  Company Number: US-PFIZER INC-202200215495

PATIENT
  Age: 71 Year
  Sex: Male

DRUGS (4)
  1. INLYTA [Suspect]
     Active Substance: AXITINIB
     Indication: Renal cancer
     Dosage: 5 MG, 2X/DAY
     Route: 048
     Dates: start: 20220121
  2. INLYTA [Suspect]
     Active Substance: AXITINIB
     Dosage: 3 MG, 2X/DAY (3 MILLIGRAM(S) ORALLY 2 TIMES A DAY X 30 DAYS)
     Route: 048
     Dates: start: 20220802
  3. KEYTRUDA [Concomitant]
     Active Substance: PEMBROLIZUMAB
     Dosage: UNK
  4. ROSUVASTATIN [Concomitant]
     Active Substance: ROSUVASTATIN
     Dosage: UNK

REACTIONS (10)
  - Dry mouth [Unknown]
  - Pain in extremity [Unknown]
  - Arthralgia [Unknown]
  - Dysphonia [Unknown]
  - Paraesthesia oral [Unknown]
  - Feeding disorder [Unknown]
  - Oral pain [Unknown]
  - Pruritus [Unknown]
  - Fatigue [Unknown]
  - Diarrhoea [Recovering/Resolving]
